FAERS Safety Report 7411020-7 (Version None)
Quarter: 2011Q2

REPORT INFORMATION
  Report Type: 
  Country: None (occurrence: None)
  Receive Date: 20110405
  Receipt Date: 20110329
  Transmission Date: 20111010
  Serious: Yes (Other)
  Sender: FDA-Public Use
  Company Number: 2011SP000114

PATIENT
  Age: 20 Year
  Sex: Male

DRUGS (3)
  1. LORAZEPAM [Concomitant]
  2. OLANZAPINE [Concomitant]
  3. ETOMIDATE [Suspect]
     Indication: INDUCTION OF ANAESTHESIA
     Dosage: 16 MG;PARN
     Route: 051

REACTIONS (1)
  - GRAND MAL CONVULSION [None]
